FAERS Safety Report 7963760-9 (Version None)
Quarter: 2011Q4

REPORT INFORMATION
  Report Type: 
  Country: None (occurrence: None)
  Receive Date: 20111208
  Receipt Date: 20111129
  Transmission Date: 20120403
  Serious: No
  Sender: FDA-Public Use
  Company Number: US-BAYER-2011-115958

PATIENT
  Age: 75 Year
  Sex: Female
  Weight: 86 kg

DRUGS (11)
  1. VITAMIN B COMPLEX WITH VITAMINS [Concomitant]
  2. CALCIUM W/MAGNESIUM/ZINC [Concomitant]
  3. ASCORBIC ACID [Concomitant]
  4. MULTIVITE [VITAMINS NOS] [Concomitant]
  5. FISH OIL [Concomitant]
  6. ALEVE (CAPLET) [Suspect]
     Indication: ANALGESIC THERAPY
     Dosage: 1 DF, BID
     Route: 048
  7. VITAMIN E [Concomitant]
  8. STOOL SOFTENER [Concomitant]
  9. VITAMIN D [COLECALCIFEROL] [Concomitant]
  10. BIOTIN [Concomitant]
  11. POTASSIUM CHLORIDE [Concomitant]

REACTIONS (1)
  - DRUG INEFFECTIVE [None]
